FAERS Safety Report 4838187-9 (Version None)
Quarter: 2005Q4

REPORT INFORMATION
  Report Type: 
  Country: None (occurrence: None)
  Receive Date: 20051122
  Receipt Date: 20051110
  Transmission Date: 20060501
  Serious: Yes (Life-Threatening, Hospitalization, Other)
  Sender: FDA-Public Use
  Company Number: TR-2005-004726

PATIENT
  Age: 56 Year
  Sex: Male
  Weight: 71 kg

DRUGS (1)
  1. ULTRAVIST 370 [Suspect]
     Indication: ANGIOGRAM
     Dosage: 200 ML, 1 DOSE, INTRAVENOUS
     Route: 042
     Dates: start: 20050401, end: 20050401

REACTIONS (7)
  - ARRHYTHMIA [None]
  - CHILLS [None]
  - HYPOTENSION [None]
  - NAUSEA [None]
  - RESUSCITATION [None]
  - VENTRICULAR FIBRILLATION [None]
  - VOMITING [None]
